FAERS Safety Report 7628193-3 (Version None)
Quarter: 2011Q3

REPORT INFORMATION
  Report Type: 
  Country: None (occurrence: None)
  Receive Date: 20110722
  Receipt Date: 20101223
  Transmission Date: 20111222
  Serious: No
  Sender: FDA-Public Use
  Company Number: US-BAYER-2011-006766

PATIENT
  Age: 40 Year
  Sex: Female
  Weight: 72.562 kg

DRUGS (4)
  1. CRESTOR [Concomitant]
     Dosage: 10 MG, UNK
  2. KLONOPIN [Concomitant]
     Dosage: 1 MG, UNK
  3. ZOLOFT [Concomitant]
     Dosage: 25 MG, UNK
  4. BETASERON [Suspect]
     Dosage: .3 MG, QOD
     Route: 058

REACTIONS (1)
  - RASH MACULAR [None]
